FAERS Safety Report 7851760-9 (Version None)
Quarter: 2011Q4

REPORT INFORMATION
  Report Type: 
  Country: None (occurrence: None)
  Receive Date: 20111026
  Receipt Date: 20111020
  Transmission Date: 20120403
  Serious: Yes (Other)
  Sender: FDA-Public Use
  Company Number: RU-JNJFOC-20111003255

PATIENT
  Age: 77 Year

DRUGS (3)
  1. CISPLATIN [Suspect]
     Indication: NASOPHARYNGEAL CANCER
     Route: 065
  2. DOXORUBICIN HCL [Suspect]
     Indication: NASOPHARYNGEAL CANCER
     Route: 042
  3. DOCETAXEL [Suspect]
     Indication: NASOPHARYNGEAL CANCER
     Route: 065

REACTIONS (3)
  - CONCOMITANT DISEASE AGGRAVATED [None]
  - TOXICITY TO VARIOUS AGENTS [None]
  - OFF LABEL USE [None]
